FAERS Safety Report 4425724-1 (Version None)
Quarter: 2004Q3

REPORT INFORMATION
  Report Type: 
  Country: None (occurrence: None)
  Receive Date: 20040810
  Receipt Date: 20040726
  Transmission Date: 20050211
  Serious: Yes (Hospitalization)
  Sender: FDA-Public Use
  Company Number: 199240

PATIENT
  Age: 45 Year
  Sex: Female
  Weight: 62.1428 kg

DRUGS (7)
  1. AVONEX [Suspect]
     Indication: MULTIPLE SCLEROSIS
     Dosage: 30 MCG QW IM
     Dates: start: 20000101, end: 20040415
  2. AVONEX [Suspect]
     Indication: MULTIPLE SCLEROSIS
     Dosage: 30 MCG QW IM
     Dates: start: 20040422
  3. ALPRAZOLAM [Concomitant]
  4. PERIACTIN [Concomitant]
  5. AMANTADINE HCL [Concomitant]
  6. OXYTROL [Concomitant]
  7. PROZAC [Concomitant]

REACTIONS (31)
  - ANAEMIA [None]
  - ANGINA UNSTABLE [None]
  - ASTHENIA [None]
  - BLOOD ELECTROLYTES DECREASED [None]
  - BLOOD UREA INCREASED [None]
  - CEREBRAL ATROPHY [None]
  - DEHYDRATION [None]
  - DEPRESSED LEVEL OF CONSCIOUSNESS [None]
  - DIARRHOEA [None]
  - DRUG SCREEN POSITIVE [None]
  - DYSPNOEA [None]
  - ELECTROCARDIOGRAM REPOLARISATION ABNORMALITY [None]
  - ELECTROCARDIOGRAM ST SEGMENT ABNORMAL [None]
  - ELECTROENCEPHALOGRAM ABNORMAL [None]
  - ENCEPHALOPATHY [None]
  - FAECAL INCONTINENCE [None]
  - GASTROENTERITIS [None]
  - HAEMATURIA [None]
  - HYPOVOLAEMIA [None]
  - MALNUTRITION [None]
  - MENOPAUSE [None]
  - MENORRHAGIA [None]
  - MENSTRUATION IRREGULAR [None]
  - MYOCARDIAL INFARCTION [None]
  - NUCLEAR MAGNETIC RESONANCE IMAGING ABNORMAL [None]
  - RECTAL HAEMORRHAGE [None]
  - SPEECH DISORDER [None]
  - TROPONIN INCREASED [None]
  - VENTRICULAR HYPERTROPHY [None]
  - WEIGHT DECREASED [None]
  - WHITE BLOOD CELL COUNT INCREASED [None]
